FAERS Safety Report 10682101 (Version 1)
Quarter: 2014Q4

REPORT INFORMATION
  Report Type: Spontaneous
  Country: DE (occurrence: None)
  Receive Date: 20141224
  Receipt Date: 20141224
  Transmission Date: 20150529
  Serious: Yes (Other)
  Sender: FDA-Public Use
  Company Number: FK201406406

PATIENT
  Sex: Male

DRUGS (3)
  1. QUININE DIHYDROCHLORIDE(QUINIE DIHYDROCHLORIDE) [Suspect]
     Active Substance: QUININE HYDROCHLORIDE
     Indication: MALARIA
     Dosage: OVER FOUR HOURS 1 IN1 ONCE
     Route: 042
  2. DOXYCYCLINE. [Suspect]
     Active Substance: DOXYCYCLINE
     Indication: MALARIA
     Route: 048
  3. ARTESUNATE(ARTESUNATE) [Suspect]
     Active Substance: ARTESUNATE
     Dosage: 5 DOSES
     Route: 054

REACTIONS (2)
  - Haemolysis [None]
  - Acute kidney injury [None]
